FAERS Safety Report 8319209-X (Version None)
Quarter: 2012Q2

REPORT INFORMATION
  Report Type: 
  Country: None (occurrence: None)
  Receive Date: 20120427
  Receipt Date: 20120417
  Transmission Date: 20120825
  Serious: Yes (Hospitalization)
  Sender: FDA-Public Use
  Company Number: US-MERCK-1204USA02587

PATIENT
  Age: 75 Year
  Sex: Female

DRUGS (12)
  1. JANUVIA [Suspect]
     Indication: DIABETES MELLITUS
     Route: 048
     Dates: start: 20120306
  2. CLONIDINE [Concomitant]
     Route: 065
  3. AMIODARONE [Concomitant]
     Route: 065
  4. LIPITOR [Concomitant]
     Route: 065
  5. OMEPRAZOLE [Concomitant]
     Route: 065
  6. MUCINEX [Concomitant]
     Route: 065
  7. FUROSEMIDE [Concomitant]
     Route: 065
  8. ALLEGRA [Concomitant]
     Route: 065
  9. LOSARTAN POTASSIUM [Concomitant]
     Route: 065
  10. JANUVIA [Suspect]
     Indication: BLOOD GLUCOSE ABNORMAL
     Route: 048
     Dates: start: 20120306
  11. SINGULAIR [Concomitant]
     Route: 048
  12. CELEBREX [Concomitant]
     Route: 065

REACTIONS (5)
  - NASAL CONGESTION [None]
  - SUFFOCATION FEELING [None]
  - DRY THROAT [None]
  - DRY MOUTH [None]
  - HYPERTENSION [None]
